FAERS Safety Report 5123445-3 (Version None)
Quarter: 2006Q4

REPORT INFORMATION
  Report Type: 
  Country: None (occurrence: None)
  Receive Date: 20061005
  Receipt Date: 20060926
  Transmission Date: 20070319
  Serious: Yes (Hospitalization)
  Sender: FDA-Public Use
  Company Number: 2006116018

PATIENT
  Age: 86 Year
  Sex: Male

DRUGS (6)
  1. LIPITOR [Suspect]
     Indication: DYSLIPIDAEMIA
     Dosage: 10 MG (10 MG,1 IN 1 D), ORAL
     Route: 048
     Dates: start: 20060101, end: 20060912
  2. LOSARTAN POSTASSIUM [Concomitant]
  3. AMLODIPINE BESILATE                (AMLODIPINE) [Concomitant]
  4. CLOPIDOGREL BISULFATE [Concomitant]
  5. ASPIRIN [Concomitant]
  6. SYNTHROID [Concomitant]

REACTIONS (3)
  - ANGIOPLASTY [None]
  - DRUG INEFFECTIVE [None]
  - MYALGIA [None]
